FAERS Safety Report 8893333 (Version 2)
Quarter: 2013Q1

REPORT INFORMATION
  Report Type: Spontaneous
  Country: BR (occurrence: BR)
  Receive Date: 20121108
  Receipt Date: 20130325
  Transmission Date: 20140127
  Serious: Yes (Hospitalization, Other)
  Sender: FDA-Public Use
  Company Number: PHHY2012BR101156

PATIENT
  Age: 11 Year
  Sex: Female
  Weight: 33.8 kg

DRUGS (12)
  1. EXJADE [Suspect]
     Indication: SICKLE CELL ANAEMIA
     Dosage: 500 MG, A DAY
     Route: 048
     Dates: start: 20121015
  2. EXJADE [Suspect]
     Dosage: 125 MG, A DAY
     Route: 048
  3. EXJADE [Suspect]
     Dosage: 625 MG, A DAY
     Route: 048
  4. FUROSEMIDE [Concomitant]
     Indication: CARDIAC MURMUR
     Dosage: 1 DF, A DAY
     Route: 048
     Dates: start: 200302
  5. FOLIC ACID [Concomitant]
     Indication: ANAEMIA
     Dosage: 1 DF, A DAY
     Route: 048
     Dates: start: 200202
  6. PURE VITAMIN C [Concomitant]
  7. PHENOBARBITAL [Concomitant]
     Indication: CONVULSION
     Dosage: 1 DF, A DAY
     Route: 048
     Dates: start: 2010
  8. CAPTOPRIL [Concomitant]
     Indication: CARDIAC MURMUR
     Dosage: 1 DF, A DAY
     Route: 048
     Dates: start: 200302
  9. HYDREA [Concomitant]
     Indication: ANAEMIA
     Dosage: 1500 MG, INTERCALATED DAYS
     Route: 048
     Dates: start: 2008
  10. DIGOXIN [Concomitant]
     Indication: CARDIAC MURMUR
     Dosage: 1 DF, A DAY
     Route: 048
     Dates: start: 200302
  11. BUDESONIDE [Concomitant]
     Indication: BRONCHITIS
     Dosage: 3 UKN, A DAY
     Route: 045
     Dates: start: 2004
  12. BUDESONIDE [Concomitant]
     Indication: RHINITIS

REACTIONS (2)
  - Somnolence [Recovered/Resolved]
  - Hypersensitivity [Recovered/Resolved]
